FAERS Safety Report 23102798 (Version 1)
Quarter: 2023Q4

REPORT INFORMATION
  Report Type: Spontaneous
  Country: PL (occurrence: None)
  Receive Date: 20231025
  Receipt Date: 20231025
  Transmission Date: 20240110
  Serious: Yes (Hospitalization)
  Sender: FDA-Public Use
  Company Number: 2023A239502

PATIENT
  Sex: Female

DRUGS (1)
  1. DAPAGLIFLOZIN [Suspect]
     Active Substance: DAPAGLIFLOZIN
     Route: 048
     Dates: start: 20220909, end: 20230928

REACTIONS (1)
  - Chronic obstructive pulmonary disease [Unknown]
